FAERS Safety Report 7284319-5 (Version None)
Quarter: 2011Q1

REPORT INFORMATION
  Report Type: 
  Country: None (occurrence: None)
  Receive Date: 20110209
  Receipt Date: 20110127
  Transmission Date: 20110831
  Serious: Yes (Hospitalization, Other)
  Sender: FDA-Public Use
  Company Number: FR-ELI_LILLY_AND_COMPANY-FR201101006622

PATIENT
  Sex: Female

DRUGS (14)
  1. BISOPROLOL FUMARATE [Concomitant]
     Dosage: UNK, UNKNOWN
     Route: 065
  2. TARCEVA [Concomitant]
     Dosage: UNK, UNKNOWN
     Route: 065
  3. LEVOTHYROX [Concomitant]
     Dosage: UNK, UNKNOWN
     Route: 065
  4. NEXIUM [Concomitant]
     Dosage: UNK, UNKNOWN
     Route: 065
  5. ATARAX [Concomitant]
     Dosage: UNK, UNKNOWN
     Route: 065
  6. CARDENSIEL [Concomitant]
     Dosage: UNK, UNKNOWN
     Route: 065
  7. ALIMTA [Suspect]
     Indication: LUNG ADENOCARCINOMA
     Dosage: 900 MG, UNKNOWN
     Route: 042
     Dates: start: 20101122, end: 20101122
  8. HEXAQUINE [Concomitant]
     Dosage: UNK, UNKNOWN
     Route: 065
  9. CRESTOR [Concomitant]
     Dosage: UNK, UNKNOWN
     Route: 065
  10. ASPIRIN [Concomitant]
     Dosage: UNK, UNKNOWN
     Route: 065
  11. KENZEN [Concomitant]
     Dosage: UNK, UNKNOWN
     Route: 065
  12. EFFEXOR [Concomitant]
     Dosage: UNK, UNKNOWN
     Route: 065
  13. SPECIAFOLDINE [Concomitant]
     Dosage: UNK, UNKNOWN
     Route: 065
  14. CORTANCYL [Concomitant]
     Dosage: UNK, UNKNOWN
     Route: 065

REACTIONS (13)
  - CYTOLYTIC HEPATITIS [None]
  - APLASIA [None]
  - ASTHENIA [None]
  - CHOLESTASIS [None]
  - THROMBOCYTOPENIA [None]
  - HYPERHIDROSIS [None]
  - EPISTAXIS [None]
  - RENAL FAILURE [None]
  - NEUTROPENIA [None]
  - MOUTH ULCERATION [None]
  - RASH ERYTHEMATOUS [None]
  - GENERAL PHYSICAL HEALTH DETERIORATION [None]
  - CHILLS [None]
